FAERS Safety Report 9806206 (Version 1)
Quarter: 2014Q1

REPORT INFORMATION
  Report Type: Spontaneous
  Country: TR (occurrence: None)
  Receive Date: 20140107
  Receipt Date: 20140107
  Transmission Date: 20141002
  Serious: Yes (Other)
  Sender: FDA-Public Use
  Company Number: 2013P1022319

PATIENT
  Age: 13 Month
  Sex: Female

DRUGS (1)
  1. CYANOCOBALAMIN [Suspect]
     Indication: VITAMIN B12 DEFICIENCY
     Route: 030

REACTIONS (10)
  - Pallor [None]
  - Social problem [None]
  - Tremor [None]
  - Chorea [None]
  - Agitation [None]
  - Cerebral atrophy [None]
  - Dyskinesia [None]
  - Restlessness [None]
  - Convulsion [None]
  - No therapeutic response [None]
